FAERS Safety Report 24845815 (Version 1)
Quarter: 2025Q1

REPORT INFORMATION
  Report Type: Spontaneous
  Country: US (occurrence: US)
  Receive Date: 20250115
  Receipt Date: 20250115
  Transmission Date: 20250409
  Serious: No
  Sender: BAYER HEALTHCARE LLC
  Company Number: US-BAYER-2025A006045

PATIENT
  Age: 79 Year
  Sex: Male

DRUGS (1)
  1. MIRALAX [Suspect]
     Active Substance: POLYETHYLENE GLYCOL 3350
     Indication: Colonoscopy
     Route: 048
     Dates: start: 20250112, end: 20250112

REACTIONS (4)
  - Product use in unapproved indication [None]
  - Product prescribing issue [None]
  - Suspected product contamination [None]
  - Extra dose administered [None]

NARRATIVE: CASE EVENT DATE: 20250112
